FAERS Safety Report 15324541 (Version 1)
Quarter: 2018Q3

REPORT INFORMATION
  Report Type: Spontaneous
  Country: IN (occurrence: IN)
  Receive Date: 20180828
  Receipt Date: 20180828
  Transmission Date: 20181010
  Serious: Yes (Life-Threatening, Other)
  Sender: FDA-Public Use
  Company Number: IN-SUN PHARMACEUTICAL INDUSTRIES LTD-2018R1-169535

PATIENT
  Age: 79 Year
  Sex: Female

DRUGS (2)
  1. CHLORTHALIDONE. [Suspect]
     Active Substance: CHLORTHALIDONE
     Indication: HYPERTENSION
     Dosage: 12.5 MG, DAILY, TAKING IT FOR PAST FEW DAYS ONLY
     Route: 065
  2. AMLODIPINE [Concomitant]
     Active Substance: AMLODIPINE BESYLATE
     Indication: HYPERTENSION
     Dosage: 10 MG, DAILY FOR A LONG PERIOD
     Route: 065

REACTIONS (5)
  - Fall [Recovered/Resolved]
  - Altered state of consciousness [Recovered/Resolved]
  - Irritability [Recovered/Resolved]
  - Hyponatraemia [Recovered/Resolved]
  - Myoclonus [Recovered/Resolved]
